FAERS Safety Report 21355190 (Version 7)
Quarter: 2022Q4

REPORT INFORMATION
  Report Type: Report from Study
  Country: MX (occurrence: MX)
  Receive Date: 20220920
  Receipt Date: 20221217
  Transmission Date: 20230113
  Serious: Yes (Other)
  Sender: FDA-Public Use
  Company Number: MX-NOVARTISPH-NVSC2022MX188914

PATIENT
  Age: 64 Year
  Sex: Female
  Weight: 54 kg

DRUGS (6)
  1. KISQALI [Suspect]
     Active Substance: RIBOCICLIB
     Indication: Breast cancer
     Dosage: UNK (SECOND SD)
     Route: 048
     Dates: start: 20220811
  2. KISQALI [Suspect]
     Active Substance: RIBOCICLIB
     Dosage: UNK (FIRST SD, AT 6 IN THE AFTERNOON AND AT 6:30 RESP.)
     Route: 048
     Dates: start: 20220812
  3. KISQALI [Suspect]
     Active Substance: RIBOCICLIB
     Dosage: UNK
     Route: 048
  4. KISQALI [Suspect]
     Active Substance: RIBOCICLIB
     Dosage: UNK, (2 MONTHS AGO)
     Route: 048
  5. LETROZOLE [Suspect]
     Active Substance: LETROZOLE
     Indication: Product used for unknown indication
     Dosage: UNK
     Route: 065
  6. ZOLEDRONIC ACID [Suspect]
     Active Substance: ZOLEDRONIC ACID
     Indication: Osteoporosis
     Dosage: UNK
     Route: 065

REACTIONS (45)
  - Metastases to lymph nodes [Not Recovered/Not Resolved]
  - Blood potassium decreased [Unknown]
  - Blood magnesium decreased [Unknown]
  - Blood glucose decreased [Not Recovered/Not Resolved]
  - Inflammation [Unknown]
  - Malaise [Unknown]
  - Dyspnoea [Unknown]
  - Constipation [Not Recovered/Not Resolved]
  - Pain [Unknown]
  - Synovial cyst [Unknown]
  - Pain in extremity [Unknown]
  - Swelling [Unknown]
  - Discomfort [Unknown]
  - Weight decreased [Recovering/Resolving]
  - Chest pain [Unknown]
  - Movement disorder [Unknown]
  - Haemorrhoids [Unknown]
  - Chest discomfort [Unknown]
  - Head discomfort [Unknown]
  - Limb deformity [Unknown]
  - Mobility decreased [Unknown]
  - Vasoconstriction [Unknown]
  - Anxiety [Unknown]
  - Phobia [Unknown]
  - Neoplasm [Unknown]
  - Illness [Unknown]
  - Rhinorrhoea [Unknown]
  - Mouth injury [Unknown]
  - Hypersensitivity [Unknown]
  - Injection site reaction [Unknown]
  - Contusion [Unknown]
  - Urticaria [Unknown]
  - Peripheral swelling [Not Recovered/Not Resolved]
  - Nasopharyngitis [Unknown]
  - Asthenia [Unknown]
  - Pyrexia [Unknown]
  - Mastitis [Unknown]
  - Cough [Unknown]
  - Productive cough [Unknown]
  - Fatigue [Unknown]
  - Headache [Unknown]
  - White blood cell count decreased [Unknown]
  - Lacrimation increased [Unknown]
  - Alopecia [Not Recovered/Not Resolved]
  - Pruritus [Unknown]

NARRATIVE: CASE EVENT DATE: 20220816
